FAERS Safety Report 6022406-X (Version None)
Quarter: 2008Q4

REPORT INFORMATION
  Report Type: 
  Country: None (occurrence: None)
  Receive Date: 20081223
  Receipt Date: 20081223
  Transmission Date: 20090506
  Serious: Yes (Hospitalization, Other)
  Sender: FDA-Public Use
  Company Number: None

PATIENT
  Age: 20 Year
  Sex: Female
  Weight: 54.4316 kg

DRUGS (1)
  1. NUVARING [Suspect]
     Indication: DYSMENORRHOEA
     Dosage: 1 21 DAYS VAG
     Route: 067
     Dates: start: 20070903, end: 20071104

REACTIONS (7)
  - CHEST PAIN [None]
  - DRUG INEFFECTIVE [None]
  - LOSS OF LIBIDO [None]
  - METRORRHAGIA [None]
  - RENAL IMPAIRMENT [None]
  - URTICARIA [None]
  - VOMITING [None]
